FAERS Safety Report 5381242-8 (Version None)
Quarter: 2007Q3

REPORT INFORMATION
  Report Type: 
  Country: None (occurrence: None)
  Receive Date: 20070706
  Receipt Date: 20070626
  Transmission Date: 20080115
  Serious: Yes (Other)
  Sender: FDA-Public Use
  Company Number: US-PFIZER INC-2007053971

PATIENT
  Sex: Female
  Weight: 59.09 kg

DRUGS (9)
  1. CHANTIX [Suspect]
     Indication: SMOKING CESSATION THERAPY
  2. ADDERALL 10 [Concomitant]
  3. MORPHINE [Concomitant]
  4. MS CONTIN [Concomitant]
  5. PHENERGAN EXPECTORANT W/ CODEINE [Concomitant]
  6. SOMA [Concomitant]
  7. PREMARIN [Concomitant]
  8. EFFEXOR XR [Concomitant]
  9. BUPROPION [Concomitant]

REACTIONS (7)
  - ABNORMAL DREAMS [None]
  - MOBILITY DECREASED [None]
  - MUSCLE SPASMS [None]
  - MUSCULOSKELETAL DISORDER [None]
  - NAUSEA [None]
  - PAIN IN EXTREMITY [None]
  - VOMITING [None]
